FAERS Safety Report 5455241-1 (Version None)
Quarter: 2007Q3

REPORT INFORMATION
  Report Type: 
  Country: None (occurrence: None)
  Receive Date: 20070918
  Receipt Date: 20070912
  Transmission Date: 20080115
  Serious: Yes (Other)
  Sender: FDA-Public Use
  Company Number: HQWYE131513SEP07

PATIENT
  Age: 40 Year
  Sex: Male

DRUGS (12)
  1. PROPRANOLOL HYDROCHLORIDE [Suspect]
     Indication: AKATHISIA
     Dosage: 80 MG, FREQUENCY NOT SPECIFIED
     Route: 048
     Dates: start: 20070719, end: 20070101
  2. PROPRANOLOL HYDROCHLORIDE [Suspect]
     Dosage: 80 MG, FREQUENCY NOT SPECIFIED
     Route: 048
     Dates: start: 20070101
  3. GAVISCON [Concomitant]
     Indication: DYSPEPSIA
     Route: 048
     Dates: start: 20070716
  4. HALOPERIDOL [Concomitant]
     Indication: ABNORMAL BEHAVIOUR
     Route: 048
     Dates: start: 20070723
  5. MIXTARD HUMAN 70/30 [Concomitant]
     Indication: DIABETES MELLITUS
     Dosage: 12 DF, 4 TIMES A DAY
     Route: 058
     Dates: start: 20060913
  6. METFORMIN HCL [Concomitant]
     Indication: DIABETES MELLITUS
     Route: 048
     Dates: start: 20060822
  7. PARACETAMOL [Concomitant]
     Dosage: DOSE AND FREQUENCY NOT SPECIFIED
     Route: 065
  8. SENNA [Concomitant]
     Indication: CONSTIPATION
     Dosage: 2 DF, 4 TIMES A DAY
     Route: 048
     Dates: start: 20040131
  9. SIMVASTATIN [Concomitant]
     Dosage: DOSE AND FREQUENCY NOT SPECIFIED
     Route: 048
     Dates: start: 20050513
  10. DEPAKOTE [Suspect]
     Indication: MOOD SWINGS
     Route: 048
     Dates: start: 20070704
  11. DEPAKOTE [Suspect]
     Dosage: DOSE AND FREQUENCY NOT SPECIFIED
     Route: 048
  12. LORAZEPAM [Concomitant]
     Indication: ABNORMAL BEHAVIOUR
     Dosage: DOSE AND FREQUENCY NOT SPECIFIED
     Route: 048
     Dates: start: 20070723

REACTIONS (4)
  - CIRCULATORY COLLAPSE [None]
  - DIZZINESS [None]
  - HEADACHE [None]
  - MALAISE [None]
